FAERS Safety Report 9207323 (Version 5)
Quarter: 2013Q2

REPORT INFORMATION
  Report Type: Report from Study
  Country: JP (occurrence: JP)
  Receive Date: 20130403
  Receipt Date: 20130514
  Transmission Date: 20140414
  Serious: Yes (Hospitalization)
  Sender: FDA-Public Use
  Company Number: JP-UCBSA-081926

PATIENT
  Age: 69 Year
  Sex: Female
  Weight: 49 kg

DRUGS (33)
  1. CERTOLIZUMAB PEGOL [Suspect]
     Indication: RHEUMATOID ARTHRITIS
     Route: 058
     Dates: start: 20110510
  2. CERTOLIZUMAB PEGOL [Suspect]
     Indication: RHEUMATOID ARTHRITIS
     Route: 058
     Dates: start: 201007, end: 20110413
  3. CERTOLIZUMAB PEGOL [Suspect]
     Indication: RHEUMATOID ARTHRITIS
     Route: 058
     Dates: start: 20091210, end: 201006
  4. AMPHOTERICIN B [Concomitant]
     Indication: OESOPHAGEAL CANDIDIASIS
     Route: 048
     Dates: start: 20121121
  5. AMLODIPINE BESILATE [Concomitant]
     Indication: HYPERTENSION
     Route: 048
     Dates: start: 20130214
  6. PREDNISOLONE [Concomitant]
     Indication: ASTHMA
     Route: 048
     Dates: start: 20121227, end: 20130326
  7. LEVOCETIRIZINE HYDROCHLORIDE [Concomitant]
     Indication: ECZEMA
     Route: 048
     Dates: start: 20121107, end: 20130326
  8. THEOPHYLLINE [Concomitant]
     Indication: ASTHMA
     Route: 048
     Dates: start: 20110427
  9. KETOPROFEN [Concomitant]
     Indication: RHEUMATOID ARTHRITIS
     Dosage: ADEQUATE DOSE 2X/DAY
     Route: 062
     Dates: start: 20121121
  10. BECLOMETASONE DIPROPIONATE [Concomitant]
     Indication: ECZEMA
     Dosage: ADEQUATE DOSE 2X/DAY
     Route: 061
     Dates: start: 20130109
  11. ATORVASTATIN CALCIUM HYDRATE [Concomitant]
     Indication: HYPERCHOLESTEROLAEMIA
     Route: 048
     Dates: start: 20121219, end: 20130326
  12. CARBOCISTEINE [Concomitant]
     Indication: SINUSITIS
     Dosage: DOSE UNKNOWN; X2/DAY
     Route: 048
     Dates: start: 20130326
  13. LOXOPROFEN SODIUM HYDRATE [Concomitant]
     Indication: RHEUMATOID ARTHRITIS
     Dosage: ADEQUATE DOSE 1-2/DAY
     Route: 062
     Dates: start: 20130221
  14. LOXOPROFEN SODIUM HYDRATE [Concomitant]
     Indication: COMPRESSION FRACTURE
     Dosage: ADEQUATE DOSE 1-2/DAY
     Route: 062
     Dates: start: 20130221
  15. LOXOPROFEN SODIUM HYDRATE [Concomitant]
     Indication: RHEUMATOID ARTHRITIS
     Route: 048
     Dates: start: 20130221, end: 20130326
  16. LOXOPROFEN SODIUM HYDRATE [Concomitant]
     Indication: COMPRESSION FRACTURE
     Route: 048
     Dates: start: 20130221, end: 20130326
  17. SULFAMETHOXAZOLE/TRIMETHOPRIM [Concomitant]
     Indication: INFECTION PROPHYLAXIS
     Dosage: 1 TAB 2X/DAY
     Route: 048
     Dates: start: 20110217
  18. SENNOSIDE [Concomitant]
     Indication: CONSTIPATION
     Route: 048
     Dates: start: 20110928
  19. SALAZOSULFAPYRIDINE [Concomitant]
     Indication: RHEUMATOID ARTHRITIS
     Route: 048
     Dates: start: 20110502
  20. ISONIAZIDE [Concomitant]
     Indication: TUBERCULOSIS
     Route: 048
     Dates: start: 20110427
  21. SODIUM RABEPRAZOLE [Concomitant]
     Indication: PROPHYLAXIS AGAINST GASTROINTESTINAL ULCER
     Route: 048
     Dates: start: 20121121
  22. TRAMADOL HYDROCHLORIDE/ACETAMINOPHEN [Concomitant]
     Indication: RHEUMATOID ARTHRITIS
     Dosage: AS NEEDED
     Route: 048
     Dates: start: 20130227
  23. SODIUM GUALENATE HYDRATE/L-GLUTAMINE [Concomitant]
     Indication: PROPHYLAXIS AGAINST GASTROINTESTINAL ULCER
     Dosage: WITH L-GUALENATE
     Route: 048
     Dates: start: 20110427, end: 20130326
  24. SODIUM GUALENATE HYDRATE/L-GLUTAMINE [Concomitant]
     Indication: PROPHYLAXIS AGAINST GASTROINTESTINAL ULCER
     Dosage: WITH SODIUM GUALENATE
     Route: 048
     Dates: start: 20110427, end: 20130326
  25. HEPARINOID [Concomitant]
     Indication: ECZEMA
     Dosage: ADEQUATE DOSE 2X/DAY; LOTION
     Route: 061
     Dates: start: 20121010
  26. TERIPARATIDE [Concomitant]
     Indication: OSTEOPOROSIS
     Dosage: GENETICAL ECOMBINATION
     Route: 058
     Dates: start: 20130109
  27. MAXACALCITOL [Concomitant]
     Indication: ECZEMA
     Dosage: ADEQUATE DOSE 2X/DAY
     Route: 061
     Dates: start: 20110801
  28. DICLOFENAC SODIUM [Concomitant]
     Indication: RHEUMATOID ARTHRITIS
     Dosage: AS NEEDED
     Route: 054
     Dates: start: 20130228, end: 20130326
  29. CEVIMELINE HYDROCHLORIDE HYDRATE [Concomitant]
     Indication: DRY MOUTH
     Dosage: DOSE UNKNOWN; X1/DAY
     Route: 048
     Dates: start: 20130326, end: 20130326
  30. CLARITHROMYCIN [Concomitant]
     Indication: SINUSITIS
     Route: 048
     Dates: start: 20130326, end: 20130326
  31. DIBASIC POTASSIUM PHOSPHATE INORGANIC SALTS COMBINED DRUG [Concomitant]
     Indication: DRY MOUTH
     Dosage: DOSE UNKNOWN; X5/DAY
     Route: 048
     Dates: start: 20130326, end: 20130326
  32. LYSOZYME HYDROCHLORIDE [Concomitant]
     Indication: SINUSITIS
     Route: 048
     Dates: start: 20130326, end: 20130326
  33. SODIUM GUALENATE HYDRATE [Concomitant]
     Indication: DRY MOUTH
     Dosage: DOSE UNKNOWN ; 4-5X/DAY
     Route: 048
     Dates: start: 20130326, end: 20130326

REACTIONS (2)
  - Acute sinusitis [Recovered/Resolved]
  - Interstitial lung disease [Recovered/Resolved]
